FAERS Safety Report 24272967 (Version 1)
Quarter: 2024Q3

REPORT INFORMATION
  Report Type: Spontaneous
  Country: US (occurrence: US)
  Receive Date: 20240902
  Receipt Date: 20240902
  Transmission Date: 20241017
  Serious: No
  Sender: CIPLA
  Company Number: US-CIPLA LTD.-2024US06598

PATIENT

DRUGS (5)
  1. DOLUTEGRAVIR [Suspect]
     Active Substance: DOLUTEGRAVIR
     Indication: Antiretroviral therapy
     Dosage: TOTAL DAILY DOSE OF 50 (UNSPECIFIED UNITS) (COURSE 1)
     Route: 048
     Dates: start: 2023
  2. DARUNAVIR [Suspect]
     Active Substance: DARUNAVIR
     Indication: Antiretroviral therapy
     Dosage: TOTAL DAILY DOSE OF 1200 (UNSPECIFIED UNITS) (COURSE 1),
     Route: 048
     Dates: start: 2023
  3. LAMIVUDINE\ZIDOVUDINE [Suspect]
     Active Substance: LAMIVUDINE\ZIDOVUDINE
     Indication: Antiretroviral therapy
     Dosage: TOTAL DAILY DOSE OF 900 (UNSPECIFIED UNITS) (COURSE 1)
     Route: 048
     Dates: start: 2023
  4. RITONAVIR [Suspect]
     Active Substance: RITONAVIR
     Indication: Antiretroviral therapy
     Dosage: TOTAL DAILY DOSE OF 200 (UNSPECIFIED UNITS) (COURSE 1)
     Route: 048
     Dates: start: 2023
  5. COBICISTAT\DARUNAVIR ETHANOLATE [Suspect]
     Active Substance: COBICISTAT\DARUNAVIR ETHANOLATE
     Indication: Antiretroviral therapy
     Dosage: TOTAL DAILY DOSE OF 230 (UNSPECIFIED UNITS) (COURSE 1)
     Route: 048
     Dates: start: 2023, end: 2023

REACTIONS (2)
  - Exposure during pregnancy [Unknown]
  - No adverse event [Unknown]
